FAERS Safety Report 25184793 (Version 2)
Quarter: 2025Q2

REPORT INFORMATION
  Report Type: Spontaneous
  Country: ZA (occurrence: ZA)
  Receive Date: 20250410
  Receipt Date: 20250425
  Transmission Date: 20250717
  Serious: Yes (Hospitalization)
  Sender: BAYER HEALTHCARE PHARMACEUTICALS INC.
  Company Number: ZA-BAYER-2025A044677

PATIENT
  Age: 58 Year
  Sex: Female

DRUGS (20)
  1. ANGELIQ [Suspect]
     Active Substance: DROSPIRENONE\ESTRADIOL
     Indication: Hormone replacement therapy
     Dosage: 1 DF, QD
     Route: 048
  2. ASPIRIN [Suspect]
     Active Substance: ASPIRIN
     Indication: Thrombosis prophylaxis
     Dosage: 100 MG, QD
     Route: 048
  3. Nazene z [Concomitant]
     Dosage: ONE SPRAY INTO BOTH NOSTRILS
     Route: 045
  4. Nazene z [Concomitant]
     Route: 048
  5. Beclate aquanase nasal spray [Concomitant]
     Indication: Hypersensitivity
     Dosage: 50 ?G, BID ONE SPRAY  INTO BOTH  NOSTRILS
     Route: 045
  6. PROPRANOLOL HYDROCHLORIDE [Concomitant]
     Active Substance: PROPRANOLOL HYDROCHLORIDE
     Indication: Hypertension
     Dosage: 10 MG, BID
     Route: 048
  7. ISMO [Concomitant]
     Active Substance: ISOSORBIDE MONONITRATE
     Indication: Angina pectoris
     Dosage: 20 MG, QD
     Route: 048
  8. PERINDOPRIL [Concomitant]
     Active Substance: PERINDOPRIL
     Indication: Hypertension
     Dosage: 5/1.25 MG
     Route: 048
  9. EUTHYROX [Concomitant]
     Active Substance: LEVOTHYROXINE SODIUM
     Indication: Hypothyroidism
     Dosage: 50 ?G, QD
     Route: 048
  10. EUTHYROX [Concomitant]
     Active Substance: LEVOTHYROXINE SODIUM
     Indication: Hypothyroidism
     Dosage: 100 ?G, QD
     Route: 048
  11. Stilpane [Concomitant]
     Indication: Pain
     Dosage: 2 DF, TID
     Route: 048
  12. Lipogen [Concomitant]
     Indication: Blood cholesterol
     Dosage: 40 MG, QD
     Route: 048
  13. K fenak [Concomitant]
     Route: 048
  14. ACETAMINOPHEN\ORPHENADRINE CITRATE [Concomitant]
     Active Substance: ACETAMINOPHEN\ORPHENADRINE CITRATE
     Route: 048
  15. FLUCONAZOLE [Concomitant]
     Active Substance: FLUCONAZOLE
     Dosage: 200 MG, OW
     Route: 048
  16. ALPRAZOLAM [Concomitant]
     Active Substance: ALPRAZOLAM
     Dosage: 1 MG, BID
     Route: 048
  17. LANSOPRAZOLE [Concomitant]
     Active Substance: LANSOPRAZOLE
     Dosage: 30 MG, QD
     Route: 048
  18. THEOPHYLLINE [Concomitant]
     Active Substance: THEOPHYLLINE
     Dosage: 200 MG, QD
     Route: 048
  19. LORAZEPAM [Concomitant]
     Active Substance: LORAZEPAM
     Dosage: 2.5 MG, QD
     Route: 048
  20. Sinumax allergy [Concomitant]
     Dosage: TAKE 1-2 TABLET
     Route: 048

REACTIONS (3)
  - Malaise [None]
  - Dehydration [None]
  - Breast disorder [None]
